FAERS Safety Report 19907413 (Version 8)
Quarter: 2022Q1

REPORT INFORMATION
  Report Type: Spontaneous
  Country: TR (occurrence: TR)
  Receive Date: 20211001
  Receipt Date: 20220223
  Transmission Date: 20220424
  Serious: Yes (Hospitalization, Other)
  Sender: FDA-Public Use
  Company Number: TR-MLMSERVICE-20210921-3113794-1

PATIENT
  Age: 2 Year
  Sex: Male

DRUGS (17)
  1. THYMOCYTE IMMUNE GLOBULIN NOS [Suspect]
     Active Substance: THYMOCYTE IMMUNE GLOBULIN NOS
     Indication: Bone marrow conditioning regimen
     Dosage: UNK
  2. OCTREOTIDE ACETATE [Suspect]
     Active Substance: OCTREOTIDE ACETATE
     Indication: Febrile neutropenia
     Dosage: UNK
  3. OCTREOTIDE ACETATE [Suspect]
     Active Substance: OCTREOTIDE ACETATE
     Indication: Gastrointestinal haemorrhage
  4. OCTREOTIDE ACETATE [Suspect]
     Active Substance: OCTREOTIDE ACETATE
     Indication: Thrombocytopenia
  5. METHYLPREDNISOLONE ACETATE [Suspect]
     Active Substance: METHYLPREDNISOLONE ACETATE
     Indication: Graft versus host disease in skin
     Dosage: 2 MG/KG, 1X/DAY
  6. METHYLPREDNISOLONE ACETATE [Suspect]
     Active Substance: METHYLPREDNISOLONE ACETATE
     Indication: Graft versus host disease in gastrointestinal tract
     Dosage: 2 MG/KG, 1X/DAY
  7. METHYLPREDNISOLONE ACETATE [Suspect]
     Active Substance: METHYLPREDNISOLONE ACETATE
     Dosage: 30 MG/KG, 1X/DAY
  8. METHYLPREDNISOLONE ACETATE [Suspect]
     Active Substance: METHYLPREDNISOLONE ACETATE
     Dosage: 2 MG/KG, 1X/DAY
  9. METHYLPREDNISOLONE ACETATE [Suspect]
     Active Substance: METHYLPREDNISOLONE ACETATE
     Dosage: 30 MG/KG, 1X/DAY
  10. METHOTREXATE SODIUM [Suspect]
     Active Substance: METHOTREXATE SODIUM
     Indication: Prophylaxis against graft versus host disease
     Dosage: UNK
  11. CYCLOSPORINE [Suspect]
     Active Substance: CYCLOSPORINE
     Indication: Prophylaxis against graft versus host disease
     Dosage: UNK
  12. FLUDARABINE [Suspect]
     Active Substance: FLUDARABINE PHOSPHATE
     Indication: Bone marrow conditioning regimen
     Dosage: UNK
  13. MYCOPHENOLATE MOFETIL [Suspect]
     Active Substance: MYCOPHENOLATE MOFETIL
     Indication: Graft versus host disease in gastrointestinal tract
     Dosage: UNK
  14. TREOSULFAN [Suspect]
     Active Substance: TREOSULFAN
     Indication: Bone marrow conditioning regimen
     Dosage: UNK
  15. ELTROMBOPAG [Concomitant]
     Active Substance: ELTROMBOPAG
     Indication: Gastrointestinal haemorrhage
     Dosage: UNK
  16. ELTROMBOPAG [Concomitant]
     Active Substance: ELTROMBOPAG
     Indication: Febrile neutropenia
  17. ELTROMBOPAG [Concomitant]
     Active Substance: ELTROMBOPAG
     Indication: Thrombocytopenia

REACTIONS (5)
  - Haematochezia [Unknown]
  - Thrombocytopenia [Unknown]
  - Pneumatosis intestinalis [Unknown]
  - Febrile neutropenia [Unknown]
  - Off label use [Unknown]
